FAERS Safety Report 6427394-X (Version None)
Quarter: 2009Q4

REPORT INFORMATION
  Report Type: 
  Country: None (occurrence: None)
  Receive Date: 20091104
  Receipt Date: 20091026
  Transmission Date: 20100525
  Serious: Yes (Other)
  Sender: FDA-Public Use
  Company Number: US-PFIZER INC-2009289212

PATIENT
  Sex: Female
  Weight: 86.168 kg

DRUGS (3)
  1. LIPITOR [Suspect]
     Indication: BLOOD CHOLESTEROL INCREASED
     Dosage: 20 MG, 1X/DAY
     Route: 048
     Dates: start: 20050101
  2. LIBRAX [Concomitant]
     Indication: IRRITABLE BOWEL SYNDROME
  3. POTASSIUM CITRATE [Concomitant]
     Indication: NEPHROLITHIASIS

REACTIONS (2)
  - BLOOD GLUCOSE INCREASED [None]
  - TENDON DISORDER [None]
